FAERS Safety Report 24394574 (Version 4)
Quarter: 2025Q1

REPORT INFORMATION
  Report Type: Spontaneous
  Country: US (occurrence: US)
  Receive Date: 20241004
  Receipt Date: 20250105
  Transmission Date: 20250408
  Serious: Yes (Other)
  Sender: JOHNSON AND JOHNSON
  Company Number: US-JNJFOC-20240981040

PATIENT
  Age: 87 Year
  Sex: Female

DRUGS (1)
  1. TYLENOL EXTRA STRENGTH CAPLET [Suspect]
     Active Substance: ACETAMINOPHEN
     Indication: Arthralgia
     Route: 048
     Dates: start: 20240925

REACTIONS (3)
  - Choking [Recovered/Resolved]
  - Product complaint [Unknown]
  - Product label issue [Unknown]

NARRATIVE: CASE EVENT DATE: 20240901
